FAERS Safety Report 26038844 (Version 1)
Quarter: 2025Q4

REPORT INFORMATION
  Report Type: Spontaneous
  Country: US (occurrence: US)
  Receive Date: 20251113
  Receipt Date: 20251113
  Transmission Date: 20260118
  Serious: No
  Sender: ALVOGEN
  Company Number: US-ALVOGEN-2025097789

PATIENT
  Sex: Female

DRUGS (3)
  1. TERIPARATIDE [Suspect]
     Active Substance: TERIPARATIDE
     Indication: Osteoporotic fracture
     Dosage: STRENGTH: 250MCG/ML
     Route: 058
     Dates: start: 2025
  2. TERIPARATIDE [Suspect]
     Active Substance: TERIPARATIDE
     Indication: Osteoporotic fracture
     Dosage: EXPIRATION DATE: UU-JUL-2026?STRENGTH: 250MCG/ML?3RD MONTH
     Route: 058
     Dates: start: 202504
  3. RINVOQ [Concomitant]
     Active Substance: UPADACITINIB
     Indication: Product used for unknown indication

REACTIONS (3)
  - Device malfunction [Unknown]
  - Device operational issue [Unknown]
  - Device defective [Unknown]

NARRATIVE: CASE EVENT DATE: 20250414
